FAERS Safety Report 9275219 (Version 2)
Quarter: 2013Q2

REPORT INFORMATION
  Report Type: Spontaneous
  Country: AR (occurrence: AR)
  Receive Date: 20130507
  Receipt Date: 20130620
  Transmission Date: 20140414
  Serious: Yes (Other)
  Sender: FDA-Public Use
  Company Number: AR-PFIZER INC-2013135767

PATIENT
  Age: 65 Year
  Sex: Female

DRUGS (1)
  1. RAPAMUNE [Suspect]
     Indication: IMMUNOSUPPRESSANT DRUG THERAPY
     Dosage: 1 MG, 1X/DAY
     Dates: start: 20100101

REACTIONS (3)
  - Fall [Recovered/Resolved]
  - Joint injury [Recovered/Resolved]
  - Skin ulcer [Recovered/Resolved]
